FAERS Safety Report 8193118-1 (Version None)
Quarter: 2012Q1

REPORT INFORMATION
  Report Type: 
  Country: None (occurrence: None)
  Receive Date: 20120308
  Receipt Date: 20120308
  Transmission Date: 20120608
  Serious: Yes (Other)
  Sender: FDA-Public Use
  Company Number: None

PATIENT
  Age: 34 Year
  Sex: Female
  Weight: 90.718 kg

DRUGS (1)
  1. MONISTAT [Suspect]
     Indication: FUNGAL INFECTION
     Dosage: 1 DOSE
     Route: 067

REACTIONS (7)
  - SELF-MEDICATION [None]
  - PRURITUS [None]
  - MUSCLE SPASMS [None]
  - PAIN [None]
  - HEADACHE [None]
  - NAUSEA [None]
  - BURNING SENSATION [None]
